FAERS Safety Report 7497139-3 (Version None)
Quarter: 2011Q2

REPORT INFORMATION
  Report Type: 
  Country: None (occurrence: None)
  Receive Date: 20110523
  Receipt Date: 20110520
  Transmission Date: 20111010
  Serious: Yes (Other)
  Sender: FDA-Public Use
  Company Number: GB-TEVA-281976ISR

PATIENT
  Age: 60 Year
  Sex: Female
  Weight: 60.4 kg

DRUGS (3)
  1. COLECALCIFEROL [Interacting]
     Indication: VITAMIN D DEFICIENCY
     Dosage: 10000 IU (INTERNATIONAL UNIT);
     Route: 048
     Dates: start: 20110401, end: 20110410
  2. PHENYTOIN [Suspect]
     Indication: MENINGIOMA
     Dates: start: 19850101
  3. PHENYTOIN [Interacting]
     Indication: POSTOPERATIVE CARE

REACTIONS (2)
  - EPILEPSY [None]
  - DRUG INTERACTION [None]
